FAERS Safety Report 20688079 (Version 2)
Quarter: 2022Q2

REPORT INFORMATION
  Report Type: Report from Study
  Country: ZA (occurrence: ZA)
  Receive Date: 20220408
  Receipt Date: 20220527
  Transmission Date: 20220721
  Serious: Yes (Other)
  Sender: FDA-Public Use
  Company Number: ZA-BAYER-2022A032455

PATIENT
  Sex: Female

DRUGS (7)
  1. EYLEA [Suspect]
     Active Substance: AFLIBERCEPT
     Indication: Age-related macular degeneration
     Dosage: UNK, BOTH EYES (SOLUTION FOR INJECTION)
     Route: 031
     Dates: start: 20210127, end: 20210127
  2. EYLEA [Suspect]
     Active Substance: AFLIBERCEPT
     Dosage: UNK, BOTH EYES (SOLUTION FOR INJECTION)
     Dates: start: 20210305, end: 20210305
  3. EYLEA [Suspect]
     Active Substance: AFLIBERCEPT
     Dosage: UNK, BOTH EYES (SOLUTION FOR INJECTION)
     Dates: start: 20210416, end: 20210416
  4. EYLEA [Suspect]
     Active Substance: AFLIBERCEPT
     Dosage: UNK (SOLUTION FOR INJECTION)
     Dates: start: 20210728, end: 20210728
  5. EYLEA [Suspect]
     Active Substance: AFLIBERCEPT
     Dosage: UNK (SOLUTION FOR INJECTION)
     Dates: start: 20210908, end: 20210908
  6. EYLEA [Suspect]
     Active Substance: AFLIBERCEPT
     Dosage: UNK (SOLUTION FOR INJECTION)
     Dates: start: 20211110, end: 20211110
  7. EYLEA [Suspect]
     Active Substance: AFLIBERCEPT
     Dosage: UNK (SOLUTION FOR INJECTION)
     Dates: start: 20220315, end: 20220315

REACTIONS (3)
  - Vitrectomy [Unknown]
  - Vitrectomy [Unknown]
  - Inappropriate schedule of product administration [Unknown]

NARRATIVE: CASE EVENT DATE: 20220303
